FAERS Safety Report 16026515 (Version 1)
Quarter: 2019Q1

REPORT INFORMATION
  Report Type: Spontaneous
  Country: US (occurrence: US)
  Receive Date: 20190302
  Receipt Date: 20190302
  Transmission Date: 20190418
  Serious: No
  Sender: FDA-Public Use
  Company Number: US-TARO-2018TAR00260

PATIENT
  Age: 57 Year
  Sex: Female
  Weight: 52.61 kg

DRUGS (2)
  1. ENALAPRIL MALEATE TABLETS USP 5 MG [Suspect]
     Active Substance: ENALAPRIL MALEATE
     Dosage: 5 MG, ONCE
     Route: 048
     Dates: start: 20180329, end: 20180329
  2. SYNTHROID [Concomitant]
     Active Substance: LEVOTHYROXINE SODIUM
     Dosage: UNK, 1X/DAY

REACTIONS (3)
  - Abdominal discomfort [Recovered/Resolved]
  - Accidental exposure to product [Recovered/Resolved]
  - Dizziness [Recovered/Resolved]

NARRATIVE: CASE EVENT DATE: 20180329
